FAERS Safety Report 9397693 (Version 1)
Quarter: 2013Q3

REPORT INFORMATION
  Report Type: Report from Study
  Country: CN (occurrence: CN)
  Receive Date: 20130712
  Receipt Date: 20130712
  Transmission Date: 20140515
  Serious: Yes (Hospitalization)
  Sender: FDA-Public Use
  Company Number: CN-ROCHE-1225220

PATIENT
  Sex: Male

DRUGS (6)
  1. PEGASYS [Suspect]
     Indication: HEPATITIS C
     Route: 058
     Dates: start: 20130223, end: 20130302
  2. PEGASYS [Suspect]
     Route: 058
     Dates: start: 20130302, end: 20130330
  3. PEGASYS [Suspect]
     Route: 058
     Dates: start: 20130513
  4. PEGASYS [Suspect]
     Route: 058
     Dates: start: 20130603, end: 20130617
  5. RIBAVIRIN [Concomitant]
     Indication: HEPATITIS C
     Route: 048
     Dates: start: 20130223, end: 20130330
  6. RIBAVIRIN [Concomitant]
     Route: 048
     Dates: start: 20130513, end: 20130617

REACTIONS (3)
  - White blood cell count decreased [Recovering/Resolving]
  - Platelet count decreased [Recovering/Resolving]
  - Hypotension [Recovering/Resolving]
